FAERS Safety Report 15931983 (Version 2)
Quarter: 2019Q3

REPORT INFORMATION
  Report Type: Spontaneous
  Country: US (occurrence: US)
  Receive Date: 20190207
  Receipt Date: 20190927
  Transmission Date: 20191004
  Serious: Yes (Other)
  Sender: FDA-Public Use
  Company Number: US-ASTRAZENECA-2018SF21265

PATIENT
  Sex: Male

DRUGS (15)
  1. PROTONIX [Suspect]
     Active Substance: PANTOPRAZOLE SODIUM
     Route: 065
     Dates: start: 20060409, end: 20170703
  2. CATAPRES [Concomitant]
     Active Substance: CLONIDINE HYDROCHLORIDE
  3. NEURONTIN [Concomitant]
     Active Substance: GABAPENTIN
  4. NEXIUM [Suspect]
     Active Substance: ESOMEPRAZOLE MAGNESIUM
     Indication: DYSPEPSIA
     Route: 048
     Dates: start: 20060409, end: 20170703
  5. TUMS [Concomitant]
     Active Substance: CALCIUM CARBONATE
  6. NEXIUM [Suspect]
     Active Substance: ESOMEPRAZOLE MAGNESIUM
     Indication: DYSPEPSIA
     Route: 048
     Dates: start: 2006, end: 2016
  7. GLUCOTROL [Concomitant]
     Active Substance: GLIPIZIDE
  8. DRISDOL [Concomitant]
     Active Substance: ERGOCALCIFEROL
  9. COREG [Concomitant]
     Active Substance: CARVEDILOL
  10. ASPIRIN. [Concomitant]
     Active Substance: ASPIRIN
  11. VIAGRA [Concomitant]
     Active Substance: SILDENAFIL CITRATE
  12. NORVASC [Concomitant]
     Active Substance: AMLODIPINE BESYLATE
  13. LIPITOR [Concomitant]
     Active Substance: ATORVASTATIN CALCIUM
  14. BICITRA [Concomitant]
     Active Substance: CITRIC ACID, 1-STEARYL ESTER\SODIUM CITRATE
  15. LASIX [Concomitant]
     Active Substance: FUROSEMIDE

REACTIONS (5)
  - Chronic kidney disease [Unknown]
  - Renal failure [Unknown]
  - Acute kidney injury [Unknown]
  - Nephrogenic anaemia [Unknown]
  - End stage renal disease [Unknown]
